FAERS Safety Report 6559162-2 (Version None)
Quarter: 2010Q1

REPORT INFORMATION
  Report Type: 
  Country: None (occurrence: None)
  Receive Date: 20100129
  Receipt Date: 20100127
  Transmission Date: 20100710
  Serious: Yes (Other)
  Sender: FDA-Public Use
  Company Number: PT-MERCK-1001PRT00007

PATIENT

DRUGS (1)
  1. SINGULAIR [Suspect]
     Route: 065
     Dates: end: 20100128

REACTIONS (1)
  - THROMBOCYTOPENIC PURPURA [None]
